FAERS Safety Report 6610684 (Version 31)
Quarter: 2014Q2

REPORT INFORMATION
  Report Type: Spontaneous
  Country: US (occurrence: US)
  Receive Date: 20080410
  Receipt Date: 20140617
  Transmission Date: 20141212
  Serious: Yes (Other)
  Sender: FDA-Public Use
  Company Number: PHEH2008US03404

PATIENT
  Age: 56 Year
  Sex: Female
  Weight: 48 kg

DRUGS (14)
  1. ZOMETA [Suspect]
     Indication: METASTASES TO BONE
     Dosage: 4 MG, QMO
     Route: 041
     Dates: start: 200312, end: 2005
  2. ZOMETA [Suspect]
     Indication: BREAST CANCER RECURRENT
     Dosage: UNK UKN, UNK
     Route: 042
     Dates: start: 2005, end: 2006
  3. PAMIDRONATE [Suspect]
     Dosage: UNK UKN, UNK
     Route: 042
  4. AROMASIN [Concomitant]
  5. XELODA [Concomitant]
  6. HYZAAR [Concomitant]
  7. AMOXICILLIN [Concomitant]
  8. ARIMIDEX ^ZENECA^ [Concomitant]
     Dates: start: 200312
  9. TRIAMTERENE AND HYDROCHLOROTHIAZID [Concomitant]
  10. FULVESTRANT [Concomitant]
  11. LAPATINIB DITOSYLATE [Concomitant]
  12. METFORMIN HYDROCHLORIDE [Concomitant]
  13. PENICILLIN V POTASSIUM [Concomitant]
  14. TAMOXIFEN [Concomitant]

REACTIONS (101)
  - Osteopenia [Unknown]
  - Osteonecrosis of jaw [Unknown]
  - Pain [Unknown]
  - Infection [Unknown]
  - Exposed bone in jaw [Unknown]
  - Osteomyelitis [Unknown]
  - Scar [Unknown]
  - Injury [Unknown]
  - Emotional distress [Unknown]
  - Pain in jaw [Unknown]
  - Anxiety [Unknown]
  - Physical disability [Unknown]
  - Tenderness [Unknown]
  - Oral cavity fistula [Unknown]
  - Primary sequestrum [Unknown]
  - Osteoarthritis [Unknown]
  - Intervertebral disc degeneration [Unknown]
  - Intervertebral disc protrusion [Unknown]
  - Renal cyst [Unknown]
  - Oesophageal mass [Unknown]
  - Gastrooesophageal reflux disease [Unknown]
  - Oesophagitis [Unknown]
  - Squamous cell carcinoma [Unknown]
  - Actinic keratosis [Unknown]
  - Second primary malignancy [Unknown]
  - Bone lesion [Unknown]
  - Uterine leiomyoma [Unknown]
  - Thyroid neoplasm [Unknown]
  - Ulcerative keratitis [Unknown]
  - Vision blurred [Unknown]
  - Eye pain [Unknown]
  - Eye pruritus [Unknown]
  - Metastases to spine [Unknown]
  - Hepatic lesion [Unknown]
  - Lymphadenopathy [Unknown]
  - Seborrhoeic keratosis [Unknown]
  - Haemangioma [Unknown]
  - Syncope [Unknown]
  - Nephrolithiasis [Unknown]
  - Renal failure acute [Unknown]
  - Diastolic dysfunction [Unknown]
  - Tricuspid valve incompetence [Unknown]
  - Mitral valve incompetence [Unknown]
  - Renal failure chronic [Unknown]
  - Proteinuria [Unknown]
  - Essential hypertension [Unknown]
  - Upper respiratory tract infection [Unknown]
  - Hyperlipidaemia [Unknown]
  - Blister [Unknown]
  - Melanocytic naevus [Unknown]
  - Fatigue [Unknown]
  - Synovial cyst [Unknown]
  - Scoliosis [Unknown]
  - Bursitis [Unknown]
  - Blood creatinine increased [Unknown]
  - Skin cancer [Unknown]
  - Type 2 diabetes mellitus [Unknown]
  - Dry eye [Unknown]
  - Chorioretinal atrophy [Unknown]
  - Myopia [Unknown]
  - Astigmatism [Unknown]
  - Diplopia [Unknown]
  - Cataract [Unknown]
  - Vitreous detachment [Unknown]
  - Computer vision syndrome [Unknown]
  - Blepharitis [Unknown]
  - Skin abrasion [Unknown]
  - Presbyopia [Unknown]
  - Cardiomegaly [Unknown]
  - Renal impairment [Unknown]
  - Renal disorder [Unknown]
  - Hepatic mass [Unknown]
  - Heart rate decreased [Unknown]
  - Dehydration [Unknown]
  - Hypotension [Unknown]
  - Tooth loss [Unknown]
  - Dental caries [Unknown]
  - Osteosclerosis [Unknown]
  - Tooth fracture [Unknown]
  - Bone loss [Unknown]
  - Gingival pain [Unknown]
  - Gingival bleeding [Unknown]
  - Impaired healing [Unknown]
  - Breath odour [Unknown]
  - Vitamin B12 deficiency [Unknown]
  - Tooth deposit [Unknown]
  - Gingivitis [Unknown]
  - Contusion [Unknown]
  - Bone disorder [Unknown]
  - Loose tooth [Unknown]
  - Excessive granulation tissue [Unknown]
  - Purulent discharge [Unknown]
  - Dental plaque [Unknown]
  - Gingival recession [Unknown]
  - Erythema [Unknown]
  - Periodontitis [Unknown]
  - Joint effusion [Unknown]
  - Pulmonary valve incompetence [Unknown]
  - Anaemia [Unknown]
  - Hyperuricaemia [Unknown]
  - Microalbuminuria [Unknown]
